FAERS Safety Report 6806720-3 (Version None)
Quarter: 2010Q2

REPORT INFORMATION
  Report Type: 
  Country: None (occurrence: None)
  Receive Date: 20100629
  Receipt Date: 20080421
  Transmission Date: 20101027
  Serious: Yes (Other)
  Sender: FDA-Public Use
  Company Number: US-PFIZER INC-2008027723

PATIENT
  Sex: Male
  Weight: 96 kg

DRUGS (3)
  1. ZYVOX [Suspect]
     Indication: STAPHYLOCOCCAL INFECTION
     Route: 048
     Dates: start: 20080215, end: 20080301
  2. LANTUS [Concomitant]
     Indication: DIABETES MELLITUS
  3. INSULIN GLULISINE [Concomitant]
     Indication: DIABETES MELLITUS

REACTIONS (3)
  - HYPERSENSITIVITY [None]
  - PRURITUS [None]
  - RASH [None]
